FAERS Safety Report 10271601 (Version 1)
Quarter: 2014Q3

REPORT INFORMATION
  Report Type: Spontaneous
  Country: US (occurrence: US)
  Receive Date: 20140701
  Receipt Date: 20140701
  Transmission Date: 20150326
  Serious: Yes (Other)
  Sender: FDA-Public Use
  Company Number: US-FRI-1000068544

PATIENT
  Sex: Female

DRUGS (1)
  1. BYSTOLIC [Suspect]
     Active Substance: NEBIVOLOL HYDROCHLORIDE

REACTIONS (2)
  - Arrhythmia [Unknown]
  - Palpitations [Unknown]
